FAERS Safety Report 15633295 (Version 2)
Quarter: 2019Q1

REPORT INFORMATION
  Report Type: Spontaneous
  Country: US (occurrence: US)
  Receive Date: 20181119
  Receipt Date: 20190201
  Transmission Date: 20190417
  Serious: No
  Sender: FDA-Public Use
  Company Number: US-PFIZER INC-2018465200

PATIENT
  Age: 75 Year
  Sex: Female
  Weight: 42.18 kg

DRUGS (4)
  1. IBRANCE [Suspect]
     Active Substance: PALBOCICLIB
     Dosage: 75 MG, 1X/DAY (AT NIGHTIME)
     Route: 048
  2. IBRANCE [Suspect]
     Active Substance: PALBOCICLIB
     Dosage: 125 MG, UNK
  3. IBRANCE [Suspect]
     Active Substance: PALBOCICLIB
     Dosage: 100 MG, UNK
  4. LETROZOLE. [Concomitant]
     Active Substance: LETROZOLE
     Dosage: UNK

REACTIONS (7)
  - Sciatica [Unknown]
  - Neoplasm progression [Unknown]
  - Dehydration [Unknown]
  - Back pain [Unknown]
  - White blood cell count decreased [Unknown]
  - Gait disturbance [Unknown]
  - Thinking abnormal [Unknown]
